FAERS Safety Report 8621719-2 (Version None)
Quarter: 2012Q3

REPORT INFORMATION
  Report Type: 
  Country: None (occurrence: None)
  Receive Date: 20120821
  Receipt Date: 20120821
  Transmission Date: 20120928
  Serious: Yes (Hospitalization)
  Sender: FDA-Public Use
  Company Number: None

PATIENT
  Sex: Male
  Weight: 13.6 kg

DRUGS (5)
  1. CYTARABINE [Suspect]
     Dosage: IT 2-2.99 YRS 50 MG
     Route: 037
  2. METHOTREXATE SODIUM [Suspect]
     Dosage: IT 2 MG/M2
     Route: 037
  3. PEG-L- ASPARAGINASE (PEGASPAEGASE, ONCOSPAR) [Suspect]
     Dosage: IV 2500 UNITS/M2
     Route: 042
  4. VINCRISTINE [Suspect]
     Dosage: IV 1.5MG/M2 ON DAY 1 AND DAY 8
     Route: 042
  5. DEXAMETHASONE TAB [Suspect]
     Dosage: PO 3 MG/M2 DOSE (1.75 BID)
     Route: 048

REACTIONS (10)
  - VOMITING [None]
  - TACHYCARDIA [None]
  - CARDIO-RESPIRATORY ARREST [None]
  - HYPOTENSION [None]
  - BACTERIAL TEST POSITIVE [None]
  - CONTUSION [None]
  - ABDOMINAL DISTENSION [None]
  - HYPOPHAGIA [None]
  - GASTROINTESTINAL NECROSIS [None]
  - FLATULENCE [None]
